FAERS Safety Report 13575118 (Version 3)
Quarter: 2017Q3

REPORT INFORMATION
  Report Type: Report from Study
  Country: US (occurrence: US)
  Receive Date: 20170523
  Receipt Date: 20170714
  Transmission Date: 20171127
  Serious: Yes (Hospitalization, Other)
  Sender: FDA-Public Use
  Company Number: US-ROCHE-1938061

PATIENT
  Age: 59 Year
  Sex: Female
  Weight: 66.68 kg

DRUGS (6)
  1. VERAPAMIL [Concomitant]
     Active Substance: VERAPAMIL HYDROCHLORIDE
     Route: 048
  2. ARIMIDEX [Concomitant]
     Active Substance: ANASTROZOLE
     Route: 048
  3. HYDROCHLOROTHIAZIDE. [Concomitant]
     Active Substance: HYDROCHLOROTHIAZIDE
     Route: 048
  4. AVASTIN [Suspect]
     Active Substance: BEVACIZUMAB
     Indication: OVARIAN CANCER
     Dosage: ONGOING:NO
     Route: 042
     Dates: start: 20160427, end: 201607
  5. AVASTIN [Suspect]
     Active Substance: BEVACIZUMAB
     Route: 042
     Dates: start: 201705
  6. NORVASC [Concomitant]
     Active Substance: AMLODIPINE BESYLATE

REACTIONS (9)
  - Ovarian cancer recurrent [Not Recovered/Not Resolved]
  - Surgery [Unknown]
  - Hypertension [Unknown]
  - Pelvic mass [Unknown]
  - Oedema peripheral [Recovered/Resolved]
  - Explorative laparotomy [Unknown]
  - Cytoreductive surgery [Unknown]
  - Colectomy [Unknown]
  - Tumour excision [Recovered/Resolved]

NARRATIVE: CASE EVENT DATE: 201611
